FAERS Safety Report 15060110 (Version 2)
Quarter: 2018Q3

REPORT INFORMATION
  Report Type: Spontaneous
  Country: US (occurrence: US)
  Receive Date: 20180625
  Receipt Date: 20180813
  Transmission Date: 20181010
  Serious: Yes (Life-Threatening)
  Sender: FDA-Public Use
  Company Number: US-BAYER-2018-113650

PATIENT
  Age: 61 Year
  Sex: Male
  Weight: 100 kg

DRUGS (1)
  1. ALEVE [Suspect]
     Active Substance: NAPROXEN SODIUM
     Indication: PAIN
     Dosage: 1 DF, Q4HR
     Route: 048
     Dates: start: 20180526, end: 20180526

REACTIONS (8)
  - Penile blister [Unknown]
  - Blister [Unknown]
  - Feeling abnormal [Unknown]
  - Pain [Unknown]
  - Oral mucosal blistering [Unknown]
  - Chills [Unknown]
  - Hypersensitivity [Unknown]
  - Paraesthesia oral [Unknown]

NARRATIVE: CASE EVENT DATE: 20180526
